FAERS Safety Report 6399150-2 (Version None)
Quarter: 2009Q4

REPORT INFORMATION
  Report Type: 
  Country: None (occurrence: None)
  Receive Date: 20091008
  Receipt Date: 20090924
  Transmission Date: 20100525
  Serious: Yes (Other)
  Sender: FDA-Public Use
  Company Number: ISPH-2009-0338

PATIENT
  Age: 56 Year
  Sex: Female
  Weight: 79.4 kg

DRUGS (2)
  1. AZASITE [Suspect]
     Indication: LASER THERAPY
     Dosage: 1 GTT, QD, OPHTHALMIC
     Route: 047
     Dates: start: 20090919
  2. LOTEMADX (LOTEPREDNOL ETABONATE) [Concomitant]

REACTIONS (6)
  - BLINDNESS UNILATERAL [None]
  - EYE DISORDER [None]
  - EYE PAIN [None]
  - FEELING HOT [None]
  - OCULAR HYPERAEMIA [None]
  - VISION BLURRED [None]
